FAERS Safety Report 4262976-5 (Version None)
Quarter: 2004Q1

REPORT INFORMATION
  Report Type: 
  Country: None (occurrence: None)
  Receive Date: 20040102
  Receipt Date: 20040102
  Transmission Date: 20041129
  Serious: No
  Sender: FDA-Public Use
  Company Number: None

PATIENT
  Sex: Male
  Weight: 86 kg

DRUGS (4)
  1. IRBESARTAN [Suspect]
     Indication: CARDIAC FAILURE CONGESTIVE
     Dosage: 75 MG PO QAM
     Route: 048
  2. IRBESARTAN [Suspect]
     Indication: DIABETES MELLITUS
     Dosage: 75 MG PO QAM
     Route: 048
  3. IRBESARTAN [Suspect]
     Indication: PROPHYLAXIS
     Dosage: 75 MG PO QAM
     Route: 048
  4. IRBESARTAN [Suspect]
     Indication: RENAL DISORDER
     Dosage: 75 MG PO QAM
     Route: 048

REACTIONS (2)
  - MEMORY IMPAIRMENT [None]
  - TINNITUS [None]
